FAERS Safety Report 7230873-9 (Version None)
Quarter: 2011Q1

REPORT INFORMATION
  Report Type: 
  Country: None (occurrence: None)
  Receive Date: 20110118
  Receipt Date: 20110114
  Transmission Date: 20110831
  Serious: Yes (Death, Other)
  Sender: FDA-Public Use
  Company Number: KR-PFIZER INC-2010009372

PATIENT
  Age: 66 Year
  Sex: Female
  Weight: 62 kg

DRUGS (3)
  1. SUNITINIB MALATE [Suspect]
     Indication: METASTATIC GASTRIC CANCER
     Dosage: 25 MG, 1X/DAY, 2/1 SCHEDULE
     Route: 048
     Dates: start: 20081119, end: 20100120
  2. CISPLATIN [Suspect]
     Indication: METASTATIC GASTRIC CANCER
     Dosage: 97.2 MG, EVERY 3 WEEKS
     Route: 042
     Dates: start: 20081119, end: 20100106
  3. XELODA [Suspect]
     Indication: METASTATIC GASTRIC CANCER
     Dosage: 1300 MG, 2X/DAY, DAY 1-14
     Route: 048
     Dates: start: 20081119, end: 20100120

REACTIONS (2)
  - DEATH [None]
  - PNEUMONIA [None]
